FAERS Safety Report 13671526 (Version 2)
Quarter: 2017Q3

REPORT INFORMATION
  Report Type: Report from Study
  Country: US (occurrence: US)
  Receive Date: 20170620
  Receipt Date: 20170727
  Transmission Date: 20171127
  Serious: Yes (Other)
  Sender: FDA-Public Use
  Company Number: US-ACTELION-A-NJ2017-155432

PATIENT
  Age: 54 Year
  Sex: Male
  Weight: 148.75 kg

DRUGS (3)
  1. ADEMPAS [Concomitant]
     Active Substance: RIOCIGUAT
  2. OPSUMIT [Suspect]
     Active Substance: MACITENTAN
     Indication: PULMONARY ARTERIAL HYPERTENSION
     Dosage: 10 MG, UNK
     Route: 048
  3. UPTRAVI [Concomitant]
     Active Substance: SELEXIPAG

REACTIONS (9)
  - Heat exhaustion [Unknown]
  - Headache [Unknown]
  - Nasal disorder [Unknown]
  - Multiple allergies [Unknown]
  - Osteoarthritis [Unknown]
  - Atrial fibrillation [Unknown]
  - Fatigue [Unknown]
  - Decreased appetite [Recovering/Resolving]
  - Rhinorrhoea [Unknown]
